FAERS Safety Report 25989834 (Version 1)
Quarter: 2025Q4

REPORT INFORMATION
  Report Type: Spontaneous
  Country: US (occurrence: US)
  Receive Date: 20251103
  Receipt Date: 20251103
  Transmission Date: 20260118
  Serious: Yes (Other)
  Sender: BAYER HEALTHCARE PHARMACEUTICALS INC.
  Company Number: US-BAYER-2025A144616

PATIENT
  Age: 39 Year
  Sex: Male

DRUGS (3)
  1. JIVI [Suspect]
     Active Substance: DAMOCTOCOG ALFA PEGOL
     Indication: Factor VIII deficiency
     Dosage: JIVI DOSE/FREQUENCY: INFUSE 3500 UNITS (3150-3850) SLOW IV PUS
  2. JIVI [Suspect]
     Active Substance: DAMOCTOCOG ALFA PEGOL
     Indication: Prophylaxis
     Dosage: 2000IU
     Route: 042
     Dates: start: 202503
  3. JIVI [Suspect]
     Active Substance: DAMOCTOCOG ALFA PEGOL
     Indication: Factor VIII deficiency
     Dosage: 3000IU
     Route: 042
     Dates: start: 202503

REACTIONS (1)
  - Haemarthrosis [None]

NARRATIVE: CASE EVENT DATE: 20250918
